FAERS Safety Report 18968545 (Version 4)
Quarter: 2022Q1

REPORT INFORMATION
  Report Type: Spontaneous
  Country: US (occurrence: US)
  Receive Date: 20210304
  Receipt Date: 20220316
  Transmission Date: 20220423
  Serious: No
  Sender: FDA-Public Use
  Company Number: NVSC2021US044151

PATIENT
  Sex: Female

DRUGS (1)
  1. VIVELLE-DOT [Suspect]
     Active Substance: ESTRADIOL
     Indication: Product used for unknown indication
     Dosage: 0.05 MG, BIW
     Route: 065
     Dates: start: 20210129

REACTIONS (5)
  - Musculoskeletal stiffness [Unknown]
  - Chest pain [Unknown]
  - Fatigue [Unknown]
  - Breast pain [Unknown]
  - Product adhesion issue [Unknown]
